FAERS Safety Report 25524754 (Version 4)
Quarter: 2025Q3

REPORT INFORMATION
  Report Type: Spontaneous
  Country: US (occurrence: US)
  Receive Date: 20250707
  Receipt Date: 20250829
  Transmission Date: 20251021
  Serious: No
  Sender: BAYER HEALTHCARE PHARMACEUTICALS INC.
  Company Number: US-BAYER-2025A087353

PATIENT
  Age: 57 Year
  Sex: Female

DRUGS (2)
  1. CLIMARA PRO [Suspect]
     Active Substance: ESTRADIOL\LEVONORGESTREL
     Route: 062
     Dates: start: 20250606
  2. BLACK COHOSH [Concomitant]
     Active Substance: BLACK COHOSH
     Dates: start: 20250606

REACTIONS (3)
  - Application site rash [None]
  - Device adhesion issue [None]
  - Weight increased [Not Recovered/Not Resolved]

NARRATIVE: CASE EVENT DATE: 20250101
